FAERS Safety Report 5536349-9 (Version None)
Quarter: 2007Q4

REPORT INFORMATION
  Report Type: 
  Country: None (occurrence: None)
  Receive Date: 20071206
  Receipt Date: 20071127
  Transmission Date: 20080405
  Serious: Yes (Hospitalization)
  Sender: FDA-Public Use
  Company Number: US-BAXTER-2007BH006492

PATIENT
  Age: 83 Year
  Sex: Male
  Weight: 83 kg

DRUGS (5)
  1. TRAVASOL 10% [Suspect]
     Indication: NUTRITIONAL SUPPORT
     Dosage: DOSE UNIT:UNKNOWN
     Route: 033
  2. PROSOL 20% SULFITE FREE [Suspect]
     Indication: NUTRITIONAL SUPPORT
     Dosage: DOSE UNIT:UNKNOWN
     Route: 033
  3. STERILE WATER FOR INJECTION IN PLASTIC CONTAINER [Suspect]
     Indication: NUTRITIONAL SUPPORT
     Dosage: DOSE UNIT:UNKNOWN
     Route: 033
  4. DIANEAL [Suspect]
     Indication: RENAL FAILURE CHRONIC
     Dosage: DOSE UNIT:UNKNOWN
     Route: 033
  5. DIANEAL [Suspect]
     Indication: RENAL FAILURE CHRONIC
     Dosage: DOSE UNIT:UNKNOWN
     Route: 033

REACTIONS (3)
  - CHILLS [None]
  - PERITONITIS [None]
  - PYREXIA [None]
